FAERS Safety Report 22113756 (Version 1)
Quarter: 2023Q1

REPORT INFORMATION
  Report Type: Spontaneous
  Country: US (occurrence: US)
  Receive Date: 20230320
  Receipt Date: 20230320
  Transmission Date: 20230417
  Serious: No
  Sender: FDA-Public Use
  Company Number: US-Covis Pharma GmbH-2023COV00417

PATIENT
  Sex: Female
  Weight: 62.58 kg

DRUGS (9)
  1. RILUZOLE [Suspect]
     Active Substance: RILUZOLE
     Indication: Amyotrophic lateral sclerosis
     Route: 048
  2. RADICAVA [Suspect]
     Active Substance: EDARAVONE
     Indication: Amyotrophic lateral sclerosis
     Dosage: 5 MILLILITERS, QD, FOR 14?DAYS, OFF 14 THEN 10 OUT OF?14 DAYS AFTERWARDS; ORAL
     Dates: start: 20220628
  3. RADICAVA [Suspect]
     Active Substance: EDARAVONE
     Dosage: 105 MILLIGRAM, QD, FOR 10?DAYS OF 14 THEN 14; ORAL
     Dates: start: 20220820
  4. SODIUM PHENYLBUTYRATE\TAURURSODIOL [Suspect]
     Active Substance: SODIUM PHENYLBUTYRATE\TAURURSODIOL
     Indication: Amyotrophic lateral sclerosis
     Dosage: 3 G-1 POWDER PACK
     Dates: start: 20221213
  5. RESTASIS [Concomitant]
     Active Substance: CYCLOSPORINE
  6. SERTRALINE HYDROCHLORIDE [Concomitant]
     Active Substance: SERTRALINE HYDROCHLORIDE
  7. GABAPENTIN [Concomitant]
     Active Substance: GABAPENTIN
  8. VITAMIN D3 [Concomitant]
     Active Substance: CHOLECALCIFEROL
  9. PROTONIX [Concomitant]
     Active Substance: PANTOPRAZOLE SODIUM

REACTIONS (3)
  - Secretion discharge [Recovered/Resolved]
  - Diarrhoea [Recovered/Resolved]
  - Anal incontinence [Recovered/Resolved]
